FAERS Safety Report 12453207 (Version 1)
Quarter: 2016Q2

REPORT INFORMATION
  Report Type: Spontaneous
  Country: US (occurrence: US)
  Receive Date: 20160609
  Receipt Date: 20160609
  Transmission Date: 20160815
  Serious: Yes (Death, Other)
  Sender: FDA-Public Use
  Company Number: US-MYLANLABS-2016M1023696

PATIENT

DRUGS (9)
  1. MINOCYCLINE [Suspect]
     Active Substance: MINOCYCLINE\MINOCYCLINE HYDROCHLORIDE
     Indication: NOCARDIOSIS
     Route: 065
  2. COTRIMOXAZOLE [Suspect]
     Active Substance: SULFAMETHOXAZOLE\TRIMETHOPRIM
     Indication: NOCARDIOSIS
     Route: 065
  3. TACROLIMUS. [Suspect]
     Active Substance: TACROLIMUS
     Indication: GRAFT VERSUS HOST DISEASE
     Route: 065
  4. IMIPENEM [Suspect]
     Active Substance: IMIPENEM
     Indication: NOCARDIOSIS
     Route: 065
  5. CEFTRIAXONE. [Suspect]
     Active Substance: CEFTRIAXONE
     Indication: NOCARDIOSIS
     Route: 065
  6. PREDNISONE. [Suspect]
     Active Substance: PREDNISONE
     Indication: GRAFT VERSUS HOST DISEASE
     Route: 065
  7. SIROLIMUS. [Suspect]
     Active Substance: SIROLIMUS
     Indication: GRAFT VERSUS HOST DISEASE
     Route: 065
  8. AMOXICILLIN W/CLAVULANIC ACID [Suspect]
     Active Substance: AMOXICILLIN\CLAVULANIC ACID
     Indication: NOCARDIOSIS
     Route: 065
  9. ATOVAQUONE. [Concomitant]
     Active Substance: ATOVAQUONE
     Indication: ANTIFUNGAL PROPHYLAXIS
     Route: 065

REACTIONS (2)
  - Nocardiosis [Fatal]
  - Treatment failure [Fatal]
